FAERS Safety Report 20018298 (Version 3)
Quarter: 2022Q2

REPORT INFORMATION
  Report Type: Report from Study
  Country: US (occurrence: None)
  Receive Date: 20211101
  Receipt Date: 20220612
  Transmission Date: 20220721
  Serious: Yes (Death, Hospitalization)
  Sender: FDA-Public Use
  Company Number: US-ROCHE-2061911

PATIENT
  Age: 71 Year
  Sex: Male
  Weight: 78.9 kg

DRUGS (8)
  1. PLACEBO [Suspect]
     Active Substance: UNSPECIFIED INGREDIENT
     Indication: Colorectal cancer metastatic
     Dosage: DATE OF MOST RECENT DOSE 02/JAN/2018
     Route: 042
     Dates: start: 20171120
  2. CAPECITABINE [Suspect]
     Active Substance: CAPECITABINE
     Indication: Colorectal cancer metastatic
     Dosage: 14 DAYS ON 7 DAYS OFF?DATE OF MOST RCEENT DOSE 13/JAN/2018
     Route: 048
     Dates: start: 20171120
  3. CAPECITABINE [Suspect]
     Active Substance: CAPECITABINE
     Dosage: BID FOR 14 DAYS
     Route: 048
  4. BEVACIZUMAB [Suspect]
     Active Substance: BEVACIZUMAB
     Indication: Colorectal cancer metastatic
     Dosage: DATE OF MOST RCEENT DOSE 02/JAN/2018?TOTAL DOSE ADMINISTERED IN LAST CYCLE 550MG
     Route: 042
     Dates: start: 20171120
  5. NORVASC [Concomitant]
     Active Substance: AMLODIPINE BESYLATE
  6. COLACE [Concomitant]
     Active Substance: DOCUSATE SODIUM
  7. XALATAN [Concomitant]
     Active Substance: LATANOPROST
  8. PRILOSEC [Concomitant]
     Active Substance: OMEPRAZOLE MAGNESIUM

REACTIONS (4)
  - Haematuria [Recovered/Resolved]
  - Multiple organ dysfunction syndrome [Fatal]
  - Neoplasm progression [Fatal]
  - Blood urine present [Recovered/Resolved]

NARRATIVE: CASE EVENT DATE: 20180114
